FAERS Safety Report 15391459 (Version 2)
Quarter: 2018Q4

REPORT INFORMATION
  Report Type: Spontaneous
  Country: US (occurrence: US)
  Receive Date: 20180917
  Receipt Date: 20181017
  Transmission Date: 20190204
  Serious: Yes (Hospitalization)
  Sender: FDA-Public Use
  Company Number: US-GLAXOSMITHKLINE-US2018GSK166796

PATIENT
  Age: 52 Year
  Sex: Male
  Weight: 122.4 kg

DRUGS (2)
  1. NICOTINE POLACRILEX [Suspect]
     Active Substance: NICOTINE
     Indication: SMOKING CESSATION THERAPY
     Dosage: 2 MG, UNK (6 LOZENGES PER 24 HRS)
     Route: 048
     Dates: start: 20180119, end: 20180309
  2. NICODERM CQ [Suspect]
     Active Substance: NICOTINE
     Indication: SMOKING CESSATION THERAPY
     Dosage: 21 MG,
     Route: 062
     Dates: start: 20180126, end: 20180309

REACTIONS (3)
  - Condition aggravated [Recovered/Resolved]
  - Coronary artery disease [Recovered/Resolved]
  - Chest pain [Recovered/Resolved]

NARRATIVE: CASE EVENT DATE: 20180303
